FAERS Safety Report 4300815-4 (Version None)
Quarter: 2004Q1

REPORT INFORMATION
  Report Type: 
  Country: None (occurrence: None)
  Receive Date: 20040218
  Receipt Date: 20040205
  Transmission Date: 20041129
  Serious: Yes (Hospitalization, Other)
  Sender: FDA-Public Use
  Company Number: 200400849

PATIENT
  Sex: Female

DRUGS (1)
  1. BOTOX PURIFIED NEUROTOXIN COMPLEX [Suspect]
     Indication: MIGRAINE
     Dosage: 90 UNITS PRN IM
     Route: 030
     Dates: start: 20031217, end: 20031217

REACTIONS (4)
  - ANEURYSM [None]
  - HEADACHE [None]
  - PAIN EXACERBATED [None]
  - SUICIDAL IDEATION [None]
